FAERS Safety Report 16335911 (Version 2)
Quarter: 2019Q2

REPORT INFORMATION
  Report Type: Spontaneous
  Country: PL (occurrence: PL)
  Receive Date: 20190521
  Receipt Date: 20190523
  Transmission Date: 20190711
  Serious: Yes (Death, Other)
  Sender: FDA-Public Use
  Company Number: PL-CELLTRION INC.-2019PL020682

PATIENT

DRUGS (15)
  1. BORTEZOMIB. [Suspect]
     Active Substance: BORTEZOMIB
     Indication: DISEASE PROGRESSION
  2. CEFEPIME [Suspect]
     Active Substance: CEFEPIME HYDROCHLORIDE
     Indication: ADJUVANT THERAPY
     Dosage: UNK, DOSAGE FORM: UNSPECIFIED
     Route: 065
  3. LEUKERAN [Concomitant]
     Active Substance: CHLORAMBUCIL
     Indication: WALDENSTROM^S MACROGLOBULINAEMIA
     Dosage: DOSAGE FORM: UNSPECIFIED
     Route: 065
  4. TIGECYCLINE. [Suspect]
     Active Substance: TIGECYCLINE
     Indication: ADJUVANT THERAPY
     Dosage: UNK, DOSAGE FORM: UNSPECIFIED
     Route: 065
  5. MEROPENEM. [Suspect]
     Active Substance: MEROPENEM
     Indication: ADJUVANT THERAPY
     Dosage: UNK, DOSAGE FORM: UNSPECIFIED
     Route: 065
  6. VANCOMYCIN [Suspect]
     Active Substance: VANCOMYCIN
     Indication: ADJUVANT THERAPY
     Dosage: UNK, DOSAGE FORM: UNSPECIFIED
     Route: 065
  7. DEXAMETHASONE. [Suspect]
     Active Substance: DEXAMETHASONE
     Indication: DISEASE PROGRESSION
  8. BORTEZOMIB. [Suspect]
     Active Substance: BORTEZOMIB
     Indication: WALDENSTROM^S MACROGLOBULINAEMIA
     Dosage: UNK, DOSAGE FORM: LYOPHILIZED POWDER
     Route: 065
  9. CIPROFLOXACIN. [Suspect]
     Active Substance: CIPROFLOXACIN
     Indication: ADJUVANT THERAPY
     Dosage: UNK, DOSAGE FORM: UNSPECIFIED
     Route: 065
  10. FLUCONAZOLE. [Suspect]
     Active Substance: FLUCONAZOLE
     Indication: ADJUVANT THERAPY
     Dosage: UNK, DOSAGE FORM: UNSPECIFIED
     Route: 065
  11. DEXAMETHASONE. [Suspect]
     Active Substance: DEXAMETHASONE
     Indication: WALDENSTROM^S MACROGLOBULINAEMIA
     Dosage: UNK, DOSAGE FORM: UNSPECIFIED
     Route: 065
  12. RITUXIMAB (UNKNOWN) [Suspect]
     Active Substance: RITUXIMAB
     Indication: DISEASE PROGRESSION
  13. AMIKACIN. [Suspect]
     Active Substance: AMIKACIN
     Indication: ADJUVANT THERAPY
     Dosage: UNK, DOSAGE FORM: UNSPECIFIED
     Route: 065
  14. ACICLOVIR [Suspect]
     Active Substance: ACYCLOVIR
     Indication: ADJUVANT THERAPY
     Dosage: UNK, DOSAGE FORM: UNSPECIFIED
     Route: 065
  15. RITUXIMAB (UNKNOWN) [Suspect]
     Active Substance: RITUXIMAB
     Indication: WALDENSTROM^S MACROGLOBULINAEMIA
     Dosage: UNK
     Route: 065

REACTIONS (16)
  - Anaemia [Fatal]
  - Blood pressure decreased [Fatal]
  - Weight decreased [Fatal]
  - Thrombocytopenia [Fatal]
  - General physical condition abnormal [Fatal]
  - Product use in unapproved indication [Fatal]
  - Abdominal pain upper [Fatal]
  - Dysphagia [Fatal]
  - Asthenia [Fatal]
  - Inflammation [Unknown]
  - Inflammatory marker increased [Fatal]
  - Cachexia [Fatal]
  - Drug ineffective [Fatal]
  - Body temperature increased [Fatal]
  - Palpitations [Fatal]
  - Off label use [Fatal]
